FAERS Safety Report 17273314 (Version 1)
Quarter: 2020Q1

REPORT INFORMATION
  Report Type: Spontaneous
  Country: US (occurrence: US)
  Receive Date: 20200115
  Receipt Date: 20200115
  Transmission Date: 20200409
  Serious: No
  Sender: FDA-Public Use
  Company Number: US-VERTEX PHARMACEUTICALS-2020-000335

PATIENT
  Sex: Female
  Weight: 60 kg

DRUGS (2)
  1. SYMDEKO [Suspect]
     Active Substance: IVACAFTOR\TEZACAFTOR
     Indication: CYSTIC FIBROSIS
     Dosage: 100MG TEZACAFTOR/150MG IVACAFTOR; 150MG IVACAFTOR
     Route: 048
     Dates: start: 20181217
  2. CAYSTON [Concomitant]
     Active Substance: AZTREONAM
     Dosage: UNK

REACTIONS (1)
  - Frequent bowel movements [Not Recovered/Not Resolved]
